FAERS Safety Report 5914935-1 (Version None)
Quarter: 2008Q4

REPORT INFORMATION
  Report Type: 
  Country: None (occurrence: None)
  Receive Date: 20081008
  Receipt Date: 20080926
  Transmission Date: 20090506
  Serious: No
  Sender: FDA-Public Use
  Company Number: US024735

PATIENT
  Sex: Female
  Weight: 63.5036 kg

DRUGS (1)
  1. FENTORA [Suspect]
     Indication: BONE GRAFT
     Dosage: 200 UG BUCCAL
     Route: 002
     Dates: start: 20060101, end: 20060101

REACTIONS (2)
  - DRUG PRESCRIBING ERROR [None]
  - MEDICATION ERROR [None]
